FAERS Safety Report 5875367-8 (Version None)
Quarter: 2008Q3

REPORT INFORMATION
  Report Type: 
  Country: None (occurrence: None)
  Receive Date: 20080904
  Receipt Date: 20080820
  Transmission Date: 20090109
  Serious: Yes (Hospitalization, Other)
  Sender: FDA-Public Use
  Company Number: 2008AL005390

PATIENT
  Age: 59 Year
  Sex: Male
  Weight: 122.4712 kg

DRUGS (5)
  1. DIGOXIN [Suspect]
     Indication: CARDIAC FAILURE CONGESTIVE
     Dosage: 0.625MG,DAILY,PO
     Route: 048
     Dates: start: 20080201
  2. COREG [Concomitant]
  3. FUROSEMIDE [Concomitant]
  4. MEBACOR [Concomitant]
  5. COUMADIN [Concomitant]

REACTIONS (3)
  - ABDOMINAL PAIN UPPER [None]
  - CARDIOACTIVE DRUG LEVEL INCREASED [None]
  - MALAISE [None]
